FAERS Safety Report 7806878-3 (Version None)
Quarter: 2011Q4

REPORT INFORMATION
  Report Type: 
  Country: None (occurrence: None)
  Receive Date: 20111011
  Receipt Date: 20110923
  Transmission Date: 20120403
  Serious: No
  Sender: FDA-Public Use
  Company Number: US-B.I. PHARMACEUTICALS,INC./RIDGEFIELD-2011-BP-22819BP

PATIENT
  Age: 62 Year
  Sex: Female

DRUGS (4)
  1. BLOOD PRESSURE PILL [Concomitant]
     Indication: HYPERTENSION
     Route: 048
  2. ALBUTEROL [Concomitant]
     Indication: ASTHMA
     Route: 048
  3. ZANTAC 150 [Suspect]
     Indication: DYSPEPSIA
     Dosage: 150 MG
     Route: 048
     Dates: start: 20110922, end: 20110922
  4. CALCIUM CARBONATE [Concomitant]
     Indication: DYSPEPSIA
     Route: 048

REACTIONS (4)
  - SOMNOLENCE [None]
  - GAIT DISTURBANCE [None]
  - DIZZINESS [None]
  - BALANCE DISORDER [None]
